FAERS Safety Report 8465060 (Version 2)
Quarter: 2013Q1

REPORT INFORMATION
  Report Type: Spontaneous
  Country: CA (occurrence: CA)
  Receive Date: 20120319
  Receipt Date: 20130124
  Transmission Date: 20140127
  Serious: Yes (Other)
  Sender: FDA-Public Use
  Company Number: CA-JNJFOC-20120304629

PATIENT
  Sex: Female
  Weight: 66.68 kg

DRUGS (2)
  1. REMICADE [Suspect]
     Indication: RHEUMATOID ARTHRITIS
     Route: 042
     Dates: start: 2008, end: 200907
  2. REMICADE [Suspect]
     Indication: RHEUMATOID ARTHRITIS
     Route: 042
     Dates: start: 201203

REACTIONS (4)
  - Breast cancer [Unknown]
  - Lymphoedema [Unknown]
  - Rheumatoid arthritis [Unknown]
  - Immunosuppression [Not Recovered/Not Resolved]
